FAERS Safety Report 7944106-9 (Version None)
Quarter: 2011Q4

REPORT INFORMATION
  Report Type: 
  Country: None (occurrence: None)
  Receive Date: 20111128
  Receipt Date: 20111116
  Transmission Date: 20120403
  Serious: Yes (Disabling, Other)
  Sender: FDA-Public Use
  Company Number: US-ASTRAZENECA-2010SE61380

PATIENT
  Age: 47 Year
  Sex: Female

DRUGS (17)
  1. LUNESTA [Concomitant]
     Indication: SLEEP DISORDER
  2. MIRALAX [Concomitant]
     Indication: CONSTIPATION
  3. WAL-ITIN [Concomitant]
     Indication: ALLERGIC SINUSITIS
  4. PRENAVITE [Concomitant]
  5. HYDROXYZINE [Concomitant]
  6. SUMATRIPTAN [Concomitant]
     Indication: MIGRAINE
  7. HYDROCODONE BITARTRATE AND ACETAMINOPHEN [Concomitant]
     Dosage: 5/325 MG
  8. NEXIUM [Suspect]
     Indication: GASTROOESOPHAGEAL REFLUX DISEASE
     Route: 048
     Dates: start: 20100811
  9. VENLAFAXINE [Concomitant]
     Indication: DEPRESSION
  10. ZOLPIDEM [Concomitant]
     Indication: SLEEP DISORDER
  11. NABUMETONE [Concomitant]
  12. PRILOSEC [Suspect]
     Route: 048
  13. CALCITRATE CALCIUM PLUS VITAMIN D SUPPLEMENT [Concomitant]
  14. ALPRAZOLAM [Concomitant]
     Indication: ANXIETY
     Dosage: 1 TO 2 TABLETS THREE TIMES A DAY (PRN)
  15. AMITRIPTYLINE HCL [Concomitant]
     Indication: MIGRAINE PROPHYLAXIS
  16. ALPRAZOLAM [Concomitant]
  17. MORPHINE SULFATE IMM REL [Concomitant]
     Dosage: 1 TO 2 TABLETS EVERY 6 TO 8 HOURS AS NEEDED

REACTIONS (8)
  - ABDOMINAL HERNIA [None]
  - MATERNAL EXPOSURE DURING PREGNANCY [None]
  - BACK DISORDER [None]
  - DRUG HYPERSENSITIVITY [None]
  - POST PROCEDURAL INFECTION [None]
  - MOBILITY DECREASED [None]
  - INTERVERTEBRAL DISC PROTRUSION [None]
  - APPENDIX DISORDER [None]
